FAERS Safety Report 5804720-3 (Version None)
Quarter: 2008Q3

REPORT INFORMATION
  Report Type: 
  Country: None (occurrence: None)
  Receive Date: 20080709
  Receipt Date: 20080703
  Transmission Date: 20090109
  Serious: Yes (Hospitalization)
  Sender: FDA-Public Use
  Company Number: US-KINGPHARMUSA00001-K200800772

PATIENT

DRUGS (3)
  1. LORABID [Suspect]
     Indication: RESPIRATORY TRACT INFECTION
     Dosage: 400 MG, BID
     Route: 048
     Dates: start: 20080602, end: 20080605
  2. PLAVIX [Suspect]
     Dates: end: 20080605
  3. ISOPTIN [Concomitant]

REACTIONS (1)
  - HAEMATURIA [None]
